FAERS Safety Report 25958764 (Version 2)
Quarter: 2025Q4

REPORT INFORMATION
  Report Type: Report from Study
  Country: EU (occurrence: EU)
  Receive Date: 20251025
  Receipt Date: 20251113
  Transmission Date: 20260118
  Serious: Yes (Hospitalization)
  Sender: ABBVIE
  Company Number: EU-ABBVIE-6513661

PATIENT
  Age: 64 Year
  Sex: Male

DRUGS (2)
  1. FOSCARBIDOPA\FOSLEVODOPA [Suspect]
     Active Substance: FOSCARBIDOPA\FOSLEVODOPA
     Indication: Parkinson^s disease
     Dosage: 240MG/ML OF FOSLEVODOPA + 12 MG/ML OF FOSCARBIDOPA, SOLUTION FOR SUBCUTANEOUS INFUSION - LOADING ...
     Route: 058
     Dates: start: 20240704
  2. FOSCARBIDOPA\FOSLEVODOPA [Suspect]
     Active Substance: FOSCARBIDOPA\FOSLEVODOPA
     Dosage: 240MG/ML OF FOSLEVODOPA + 12 MG/ML FOSCARBIDOPA, SOLUTION FOR SUBCUTANEOUS INFUSION, BASE DOSE 0....
     Route: 058
     Dates: end: 2025

REACTIONS (1)
  - Tachycardia [Recovered/Resolved]

NARRATIVE: CASE EVENT DATE: 20250915
